FAERS Safety Report 6967132-5 (Version None)
Quarter: 2010Q3

REPORT INFORMATION
  Report Type: 
  Country: None (occurrence: None)
  Receive Date: 20100907
  Receipt Date: 20100826
  Transmission Date: 20110219
  Serious: Yes (Other)
  Sender: FDA-Public Use
  Company Number: SE-BAYER-201036856GPV

PATIENT
  Age: 44 Year
  Sex: Female
  Weight: 67 kg

DRUGS (1)
  1. YASMIN [Suspect]
     Indication: CONTRACEPTION
     Route: 048
     Dates: start: 20100717, end: 20100726

REACTIONS (7)
  - ABDOMINAL DISCOMFORT [None]
  - ASTHENIA [None]
  - CONSTIPATION [None]
  - DEPRESSION [None]
  - MALAISE [None]
  - MIGRAINE [None]
  - SUICIDAL IDEATION [None]
